FAERS Safety Report 19808072 (Version 3)
Quarter: 2021Q4

REPORT INFORMATION
  Report Type: Spontaneous
  Country: US (occurrence: US)
  Receive Date: 20210908
  Receipt Date: 20211203
  Transmission Date: 20220303
  Serious: Yes (Hospitalization, Other)
  Sender: FDA-Public Use
  Company Number: US-HORIZON THERAPEUTICS-HZN-2021-006368

PATIENT

DRUGS (3)
  1. DUEXIS [Suspect]
     Active Substance: FAMOTIDINE\IBUPROFEN
     Indication: Rheumatoid arthritis
     Dosage: 800 MG/26.6 MG, BID
     Route: 048
  2. DUEXIS [Suspect]
     Active Substance: FAMOTIDINE\IBUPROFEN
     Dosage: 1 DOSAGE FORM (1 TABLET), 3 TIMES A DAY AS NEEDED
     Route: 065
  3. DUEXIS [Suspect]
     Active Substance: FAMOTIDINE\IBUPROFEN
     Dosage: 1 DOSAGE FORM (1 TABLET), TID
     Route: 048

REACTIONS (11)
  - Staphylococcal infection [Unknown]
  - Lower limb fracture [Unknown]
  - Limb injury [Unknown]
  - Gait disturbance [Unknown]
  - Dysstasia [Unknown]
  - Kidney infection [Unknown]
  - Tooth disorder [Unknown]
  - Toothache [Unknown]
  - Swelling face [Unknown]
  - Product prescribing error [Unknown]
  - Product dose omission issue [Unknown]
